FAERS Safety Report 7530935-2 (Version None)
Quarter: 2011Q2

REPORT INFORMATION
  Report Type: 
  Country: None (occurrence: None)
  Receive Date: 20110608
  Receipt Date: 20110526
  Transmission Date: 20111010
  Serious: Yes (Hospitalization)
  Sender: FDA-Public Use
  Company Number: JP-ELI_LILLY_AND_COMPANY-JP201104000962

PATIENT
  Sex: Male
  Weight: 65 kg

DRUGS (6)
  1. GOODMIN [Concomitant]
     Dosage: UNK
  2. LORAZEPAM [Concomitant]
     Dosage: 0.5 MG, TID
     Dates: start: 20110216, end: 20110310
  3. CYMBALTA [Suspect]
     Indication: DEPRESSION
     Dosage: 20 MG, QD
     Route: 048
     Dates: start: 20110216, end: 20110221
  4. FLUNITRAZEPAM [Concomitant]
     Dosage: UNK
     Dates: start: 20110216
  5. CYMBALTA [Suspect]
     Dosage: 40 MG, QD
     Route: 048
     Dates: start: 20110222, end: 20110310
  6. SULPIRIDE [Concomitant]
     Dosage: 50 MG, TID
     Route: 048

REACTIONS (7)
  - ALANINE AMINOTRANSFERASE INCREASED [None]
  - ASPARTATE AMINOTRANSFERASE INCREASED [None]
  - JAUNDICE [None]
  - LIVER DISORDER [None]
  - BLOOD ALKALINE PHOSPHATASE INCREASED [None]
  - BLOOD LACTATE DEHYDROGENASE INCREASED [None]
  - GAMMA-GLUTAMYLTRANSFERASE INCREASED [None]
